FAERS Safety Report 10400723 (Version 1)
Quarter: 2014Q1

REPORT INFORMATION
  Report Type: Spontaneous
  Country: US (occurrence: None)
  Receive Date: 20130815
  Receipt Date: 20130815
  Transmission Date: 20141002
  Serious: Yes (Hospitalization, Other)
  Sender: FDA-Public Use
  Company Number: ADR-2012-01449

PATIENT
  Sex: Male

DRUGS (3)
  1. LIORESAL [Suspect]
     Indication: MUSCLE SPASTICITY
     Route: 037
  2. LIORESAL [Suspect]
     Indication: CEREBRAL PALSY
     Route: 037
  3. ORAL BACLOFEN, [Concomitant]

REACTIONS (4)
  - Muscle spasticity [None]
  - No therapeutic response [None]
  - Stress [None]
  - Implant site mass [None]
